FAERS Safety Report 16006492 (Version 1)
Quarter: 2019Q1

REPORT INFORMATION
  Report Type: Spontaneous
  Country: US (occurrence: US)
  Receive Date: 20190226
  Receipt Date: 20190226
  Transmission Date: 20190418
  Serious: No
  Sender: FDA-Public Use
  Company Number: US-FERRINGPH-2018FE05334

PATIENT
  Age: 18 Year
  Sex: Male

DRUGS (1)
  1. DESMOPRESSIN [Suspect]
     Active Substance: DESMOPRESSIN
     Indication: ENURESIS
     Route: 065

REACTIONS (2)
  - Middle insomnia [Unknown]
  - Confusional state [Unknown]
